FAERS Safety Report 17201833 (Version 1)
Quarter: 2019Q4

REPORT INFORMATION
  Report Type: Spontaneous
  Country: US (occurrence: US)
  Receive Date: 20191226
  Receipt Date: 20191226
  Transmission Date: 20200122
  Serious: No
  Sender: FDA-Public Use
  Company Number: US-PFIZER INC-2019549222

PATIENT
  Age: 36 Year
  Sex: Female

DRUGS (1)
  1. EUCRISA [Suspect]
     Active Substance: CRISABOROLE

REACTIONS (3)
  - Condition aggravated [Unknown]
  - Skin disorder [Unknown]
  - Blister [Unknown]
